FAERS Safety Report 12372498 (Version 2)
Quarter: 2016Q2

REPORT INFORMATION
  Report Type: Spontaneous
  Country: US (occurrence: US)
  Receive Date: 20160516
  Receipt Date: 20160518
  Transmission Date: 20160815
  Serious: No
  Sender: FDA-Public Use
  Company Number: US-009507513-1605USA007804

PATIENT

DRUGS (2)
  1. ASMANEX HFA [Suspect]
     Active Substance: MOMETASONE FUROATE
     Dosage: 120 DOSE
  2. ASMANEX HFA [Suspect]
     Active Substance: MOMETASONE FUROATE
     Dosage: 120 DOSE

REACTIONS (3)
  - Product quality issue [Unknown]
  - Incorrect dose administered [Unknown]
  - Product container issue [Unknown]
